FAERS Safety Report 21093714 (Version 1)
Quarter: 2022Q3

REPORT INFORMATION
  Report Type: Spontaneous
  Country: US (occurrence: US)
  Receive Date: 20220718
  Receipt Date: 20220718
  Transmission Date: 20221027
  Serious: Yes (Hospitalization)
  Sender: FDA-Public Use
  Company Number: US-BAYER-2022A095422

PATIENT
  Age: 43 Year
  Sex: Male

DRUGS (1)
  1. CALCIUM CARBONATE [Suspect]
     Active Substance: CALCIUM CARBONATE
     Dosage: UNK UNK, QD

REACTIONS (4)
  - Hypercalcaemia [Unknown]
  - Intentional overdose [Unknown]
  - Nausea [Unknown]
  - Vomiting [Unknown]
